FAERS Safety Report 20733966 (Version 1)
Quarter: 2022Q2

REPORT INFORMATION
  Report Type: Spontaneous
  Country: PL (occurrence: PL)
  Receive Date: 20220421
  Receipt Date: 20220421
  Transmission Date: 20220721
  Serious: Yes (Hospitalization, Other)
  Sender: FDA-Public Use
  Company Number: PL-SUN PHARMACEUTICAL INDUSTRIES LTD-2022R1-333035

PATIENT
  Age: 68 Year
  Sex: Female

DRUGS (1)
  1. METHOTREXATE [Suspect]
     Active Substance: METHOTREXATE
     Indication: Arthritis
     Dosage: 15 MILLIGRAM, WEEKLY
     Route: 065

REACTIONS (4)
  - Mouth ulceration [Unknown]
  - Toxicity to various agents [Unknown]
  - Product administration error [Unknown]
  - Accidental overdose [Unknown]
